FAERS Safety Report 8817178 (Version 1)
Quarter: 2012Q4

REPORT INFORMATION
  Report Type: Spontaneous
  Country: US (occurrence: None)
  Receive Date: 20121003
  Receipt Date: 20121003
  Transmission Date: 20130627
  Serious: No
  Sender: FDA-Public Use
  Company Number: None

PATIENT
  Age: 50 Year
  Sex: Male
  Weight: 567 kg

DRUGS (2)
  1. CEFTRIAXONE [Concomitant]
     Dosage: 2gm X1 IV
     Route: 042
     Dates: start: 20120812
  2. TYLENOL [Concomitant]

REACTIONS (2)
  - Pruritus [None]
  - Swollen tongue [None]
